FAERS Safety Report 5008405-5 (Version None)
Quarter: 2006Q2

REPORT INFORMATION
  Report Type: 
  Country: None (occurrence: None)
  Receive Date: 20060523
  Receipt Date: 20030613
  Transmission Date: 20061013
  Serious: Yes (Hospitalization)
  Sender: FDA-Public Use
  Company Number: PHHO2003ES07559

PATIENT
  Age: 56 Year
  Sex: Male

DRUGS (11)
  1. ZOLEDRONIC ACID [Suspect]
     Indication: METASTASES TO BONE
     Dosage: 4 MG, QMO
     Route: 042
     Dates: start: 20030213, end: 20030609
  2. ZOLEDRONIC ACID [Suspect]
     Dosage: NO TREATMENT
     Dates: start: 20030610
  3. OMEPRAZOLE [Concomitant]
  4. METAMIZOLE [Concomitant]
  5. TRAMADOL HCL [Concomitant]
  6. MYCOSTATIN [Concomitant]
  7. ADOLONTA [Concomitant]
  8. MEGEFREN [Concomitant]
  9. CALCIUM SANDOZ [Concomitant]
  10. CISPLATIN [Concomitant]
  11. VINORELBINE [Concomitant]

REACTIONS (3)
  - ANAEMIA [None]
  - DYSPHAGIA [None]
  - ODYNOPHAGIA [None]
